FAERS Safety Report 6901437-9 (Version None)
Quarter: 2010Q3

REPORT INFORMATION
  Report Type: 
  Country: None (occurrence: None)
  Receive Date: 20100803
  Receipt Date: 20080128
  Transmission Date: 20110219
  Serious: No
  Sender: FDA-Public Use
  Company Number: US-PFIZER INC-2008008490

PATIENT
  Sex: Female
  Weight: 81.818 kg

DRUGS (8)
  1. LYRICA [Suspect]
     Indication: COMPLEX REGIONAL PAIN SYNDROME
     Dates: start: 20050101
  2. BACLOFEN [Concomitant]
  3. MOBIC [Concomitant]
  4. ZOLOFT [Concomitant]
  5. CYMBALTA [Concomitant]
  6. VICODIN [Concomitant]
  7. LIDOCAINE [Concomitant]
  8. METOPROLOL [Concomitant]

REACTIONS (1)
  - DRUG INEFFECTIVE [None]
